FAERS Safety Report 4443718-7 (Version None)
Quarter: 2004Q3

REPORT INFORMATION
  Report Type: 
  Country: None (occurrence: None)
  Receive Date: 20040908
  Receipt Date: 20040831
  Transmission Date: 20050211
  Serious: Yes (Hospitalization, Other)
  Sender: FDA-Public Use
  Company Number: PHEH2004US09475

PATIENT
  Age: 59 Year
  Sex: Female
  Weight: 69 kg

DRUGS (21)
  1. ZELNORM [Suspect]
     Indication: CONSTIPATION
     Dosage: 6 MG, BID
     Route: 048
     Dates: start: 20040809, end: 20040810
  2. LOTREL [Concomitant]
  3. SPIRIVA ^PFIZER^ [Concomitant]
  4. NEURONTIN [Concomitant]
  5. SINGULAIR ^DIECKMANN^ [Concomitant]
  6. DIOVAN [Concomitant]
  7. NOVOLOG [Concomitant]
  8. COLACE [Concomitant]
  9. DITROPAN [Concomitant]
  10. EVISTA [Concomitant]
  11. ADVAIR DISKUS 100/50 [Concomitant]
  12. WELLBUTRIN [Concomitant]
  13. VIOXX [Concomitant]
  14. ATROVENT [Concomitant]
  15. XOPENEX [Concomitant]
  16. PLAVIX [Concomitant]
  17. ASPIRIN [Concomitant]
  18. TOPROL-XL [Concomitant]
  19. NITRO [Concomitant]
  20. PANTOPRAZOLE [Concomitant]
  21. PREDNISONE [Concomitant]

REACTIONS (8)
  - ABDOMINAL PAIN [None]
  - ABDOMINAL TENDERNESS [None]
  - BIOPSY ABDOMINAL WALL ABNORMAL [None]
  - COLITIS ISCHAEMIC [None]
  - DIARRHOEA HAEMORRHAGIC [None]
  - HAEMATOCHEZIA [None]
  - HAEMORRHOIDS [None]
  - RECTAL HAEMORRHAGE [None]
